FAERS Safety Report 6193973-0 (Version None)
Quarter: 2009Q2

REPORT INFORMATION
  Report Type: 
  Country: None (occurrence: None)
  Receive Date: 20090518
  Receipt Date: 20090508
  Transmission Date: 20091009
  Serious: Yes (Hospitalization)
  Sender: FDA-Public Use
  Company Number: PHHO2008SK00921

PATIENT
  Sex: Male
  Weight: 67 kg

DRUGS (3)
  1. RAD 666 RAD+TAB+PTR [Suspect]
     Indication: RENAL TRANSPLANT
     Dosage: 0.75 MG, BID
     Route: 048
     Dates: start: 20060414
  2. NEORAL [Suspect]
     Indication: RENAL TRANSPLANT
     Dosage: 50 MG, BID
     Route: 048
     Dates: start: 20080114
  3. ANOPYRIN [Concomitant]

REACTIONS (3)
  - BLOOD CREATININE INCREASED [None]
  - HYPERGLYCAEMIA [None]
  - KIDNEY TRANSPLANT REJECTION [None]
